FAERS Safety Report 5710392-9 (Version None)
Quarter: 2008Q2

REPORT INFORMATION
  Report Type: 
  Country: None (occurrence: None)
  Receive Date: 20080418
  Receipt Date: 20080417
  Transmission Date: 20081010
  Serious: Yes (Hospitalization)
  Sender: FDA-Public Use
  Company Number: FR-MERCK-0804FRA00082

PATIENT
  Age: 84 Year
  Sex: Female

DRUGS (11)
  1. NOROXIN [Suspect]
     Indication: URINARY TRACT INFECTION
     Route: 048
     Dates: start: 20080201, end: 20080229
  2. FLUINDIONE [Suspect]
     Indication: PROPHYLAXIS
     Route: 048
     Dates: end: 20080228
  3. FLUINDIONE [Suspect]
     Route: 048
     Dates: start: 20080229, end: 20080229
  4. CARBAMAZEPINE [Concomitant]
     Route: 048
  5. BENSERAZIDE HYDROCHLORIDE AND LEVODOPA [Concomitant]
     Route: 048
  6. PRAVASTATIN SODIUM [Concomitant]
     Indication: DYSLIPIDAEMIA
     Route: 048
  7. POLYETHYLENE GLYCOL 3350 AND POTASSIUM CHLORIDE AND SODIUM BICARBONATE [Concomitant]
     Route: 048
  8. FUROSEMIDE [Concomitant]
     Route: 048
  9. NICARDIPINE HYDROCHLORIDE [Concomitant]
     Indication: HYPERTENSION
     Route: 048
  10. TIANEPTINE SODIUM [Concomitant]
     Route: 048
  11. ESOMEPRAZOLE MAGNESIUM [Concomitant]
     Route: 048

REACTIONS (6)
  - ANAEMIA [None]
  - DRUG INTERACTION [None]
  - HAEMATOMA [None]
  - INTERNATIONAL NORMALISED RATIO INCREASED [None]
  - OVERDOSE [None]
  - RENAL IMPAIRMENT [None]
